FAERS Safety Report 24885948 (Version 1)
Quarter: 2025Q1

REPORT INFORMATION
  Report Type: Spontaneous
  Country: US (occurrence: US)
  Receive Date: 20250125
  Receipt Date: 20250125
  Transmission Date: 20250408
  Serious: No
  Sender: SANOFI AVENTIS
  Company Number: US-SA-2025SA020182

PATIENT
  Age: 69 Year
  Sex: Female

DRUGS (6)
  1. DUPIXENT [Suspect]
     Active Substance: DUPILUMAB
     Indication: Asthma
     Dosage: 300 MG, QOW
     Route: 058
  2. ATORVASTATIN [Concomitant]
     Active Substance: ATORVASTATIN
  3. BREO ELLIPTA [Concomitant]
     Active Substance: FLUTICASONE FUROATE\VILANTEROL TRIFENATATE
  4. FAMOTIDINE [Concomitant]
     Active Substance: FAMOTIDINE
  5. MONTELUKAST [Concomitant]
     Active Substance: MONTELUKAST
  6. SPIRIVA RESPIMAT [Concomitant]
     Active Substance: TIOTROPIUM BROMIDE

REACTIONS (3)
  - Dyspnoea [Not Recovered/Not Resolved]
  - Nasal polyps [Not Recovered/Not Resolved]
  - Dry eye [Not Recovered/Not Resolved]
